FAERS Safety Report 14567744 (Version 1)
Quarter: 2018Q1

REPORT INFORMATION
  Report Type: Report from Study
  Country: CA (occurrence: CA)
  Receive Date: 20180223
  Receipt Date: 20180223
  Transmission Date: 20180509
  Serious: Yes (Other)
  Sender: FDA-Public Use
  Company Number: CA-GLAXOSMITHKLINE-CA2018GSK026883

PATIENT
  Sex: Male

DRUGS (1)
  1. MEPOLIZUMAB [Suspect]
     Active Substance: MEPOLIZUMAB
     Indication: ASTHMA
     Dosage: 100 MG, Z, (PATIENT IS ON NUCALA 100 MG MONTHLY.)
     Route: 042

REACTIONS (5)
  - Lumbar vertebral fracture [Unknown]
  - Seizure [Unknown]
  - Hernia [Unknown]
  - Spinal fracture [Unknown]
  - Fall [Unknown]
